FAERS Safety Report 21303844 (Version 1)
Quarter: 2022Q3

REPORT INFORMATION
  Report Type: Spontaneous
  Country: US (occurrence: None)
  Receive Date: 20220907
  Receipt Date: 20220907
  Transmission Date: 20221027
  Serious: No
  Sender: FDA-Public Use
  Company Number: None

PATIENT
  Age: 45 Year
  Sex: Female

DRUGS (1)
  1. AIMOVIG [Suspect]
     Active Substance: ERENUMAB-AOOE
     Indication: Migraine
     Dosage: FREQUENCY : MONTHLY;?OTHER ROUTE : SC INJ;?
     Route: 050
     Dates: start: 20220103, end: 20220907

REACTIONS (1)
  - Constipation [None]

NARRATIVE: CASE EVENT DATE: 20220907
